FAERS Safety Report 10340119 (Version 1)
Quarter: 2014Q3

REPORT INFORMATION
  Report Type: Spontaneous
  Country: US (occurrence: US)
  Receive Date: 20140724
  Receipt Date: 20140724
  Transmission Date: 20150326
  Serious: No
  Sender: FDA-Public Use
  Company Number: US-009507513-1407USA010570

PATIENT
  Sex: Male

DRUGS (1)
  1. DR. SCHOLL^S ONE STEP CORN REMOVERS [Suspect]
     Active Substance: SALICYLIC ACID
     Indication: HYPERKERATOSIS
     Dosage: 1 DF, ONCE
     Route: 061
     Dates: start: 201407, end: 20140708

REACTIONS (2)
  - Pain of skin [Not Recovered/Not Resolved]
  - Skin discolouration [Not Recovered/Not Resolved]

NARRATIVE: CASE EVENT DATE: 201407
